FAERS Safety Report 7351386-X (Version None)
Quarter: 2011Q1

REPORT INFORMATION
  Report Type: 
  Country: None (occurrence: None)
  Receive Date: 20110314
  Receipt Date: 20110310
  Transmission Date: 20110831
  Serious: Yes (Death)
  Sender: FDA-Public Use
  Company Number: PHHY2011LB19622

PATIENT
  Sex: Female

DRUGS (1)
  1. GLEEVEC [Suspect]
     Indication: CHRONIC MYELOID LEUKAEMIA
     Dosage: 400 MG, DAILY
     Route: 048
     Dates: start: 20080101

REACTIONS (4)
  - NEOPLASM MALIGNANT [None]
  - METASTASES TO LUNG [None]
  - METASTASES TO LIVER [None]
  - BREAST CANCER RECURRENT [None]
